FAERS Safety Report 19179079 (Version 1)
Quarter: 2021Q2

REPORT INFORMATION
  Report Type: Other
  Country: FR (occurrence: FR)
  Receive Date: 20210426
  Receipt Date: 20210426
  Transmission Date: 20210717
  Serious: Yes (Congenital Anomaly)
  Sender: FDA-Public Use
  Company Number: FR-CADILA HEALTHCARE LIMITED-FR-ZYDUS-064824

PATIENT

DRUGS (1)
  1. PAROXETINE. [Suspect]
     Active Substance: PAROXETINE
     Indication: MIXED ANXIETY AND DEPRESSIVE DISORDER
     Dosage: UNK
     Route: 064

REACTIONS (1)
  - Talipes [Not Recovered/Not Resolved]

NARRATIVE: CASE EVENT DATE: 20210122
